FAERS Safety Report 4692814-8 (Version None)
Quarter: 2005Q2

REPORT INFORMATION
  Report Type: 
  Country: None (occurrence: None)
  Receive Date: 20050617
  Receipt Date: 20050608
  Transmission Date: 20051028
  Serious: Yes (Hospitalization)
  Sender: FDA-Public Use
  Company Number: 2005AP03261

PATIENT
  Age: 38 Year
  Sex: Male

DRUGS (3)
  1. OMEPRAL [Suspect]
     Route: 048
  2. OMEPRAL [Suspect]
     Route: 048
  3. OMEPRAZOLE [Suspect]
     Route: 042
     Dates: start: 20031201

REACTIONS (2)
  - DRUG INEFFECTIVE [None]
  - GASTRIC ULCER [None]
